FAERS Safety Report 9108211 (Version 1)
Quarter: 2013Q1

REPORT INFORMATION
  Report Type: Spontaneous
  Country: US (occurrence: US)
  Receive Date: 20130221
  Receipt Date: 20130221
  Transmission Date: 20140127
  Serious: Yes (Death, Hospitalization, Other)
  Sender: FDA-Public Use
  Company Number: US-009507513-1302USA008237

PATIENT
  Age: 47 Year
  Sex: Male

DRUGS (2)
  1. PEGINTRON [Suspect]
     Indication: HEPATITIS C
     Dosage: 150 MICROGRAM, QW
     Route: 058
     Dates: start: 20121115
  2. RIBAVIRIN [Suspect]
     Route: 048

REACTIONS (4)
  - Cardiac arrest [Fatal]
  - Dizziness [Unknown]
  - Syncope [Unknown]
  - Atrial fibrillation [Unknown]
